FAERS Safety Report 17271002 (Version 1)
Quarter: 2020Q1

REPORT INFORMATION
  Report Type: Report from Study
  Country: None (occurrence: US)
  Receive Date: 20200115
  Receipt Date: 20200115
  Transmission Date: 20200409
  Serious: Yes (Other)
  Sender: FDA-Public Use
  Company Number: US-ABBVIE-20P-163-3229498-00

PATIENT
  Age: 62 Year
  Sex: Male

DRUGS (1)
  1. IMBRUVICA [Suspect]
     Active Substance: IBRUTINIB
     Indication: CHRONIC MYELOID LEUKAEMIA
     Route: 048
     Dates: start: 20180201

REACTIONS (7)
  - Myalgia [Unknown]
  - Diarrhoea [Unknown]
  - Visual impairment [Unknown]
  - Memory impairment [Unknown]
  - Oral pain [Unknown]
  - Product dose omission [Unknown]
  - Deafness [Unknown]

NARRATIVE: CASE EVENT DATE: 201810
